FAERS Safety Report 4383920-6 (Version None)
Quarter: 2004Q2

REPORT INFORMATION
  Report Type: 
  Country: None (occurrence: None)
  Receive Date: 20040621
  Receipt Date: 20040607
  Transmission Date: 20050107
  Serious: Yes (Hospitalization)
  Sender: FDA-Public Use
  Company Number: FR-JNJFOC-20040602355

PATIENT
  Age: 7 Day
  Sex: Male
  Weight: 2.7 kg

DRUGS (3)
  1. TOPIRAMATE [Suspect]
     Dosage: 50 MG, 1 IN 1 DAY, INTRA-UTERINE
     Route: 015
     Dates: end: 20040405
  2. URBANYL (CLOBAZAM) [Suspect]
     Indication: EPILEPSY
     Dosage: 5 MG, 1 IN 1 DAY, INTRA-UTERINE
     Route: 015
     Dates: end: 20040405
  3. LAMICTAL [Suspect]
     Indication: EPILEPSY
     Dosage: 200 MG, 1 IN 1 DAY, INTRA-UTERINE
     Route: 015
     Dates: end: 20040405

REACTIONS (7)
  - APLASTIC ANAEMIA [None]
  - ATROPHY [None]
  - CAESAREAN SECTION [None]
  - DRUG EXPOSURE DURING PREGNANCY [None]
  - PALLOR [None]
  - POOR SUCKING REFLEX [None]
  - WEIGHT GAIN POOR [None]
